FAERS Safety Report 4841323-1 (Version None)
Quarter: 2005Q4

REPORT INFORMATION
  Report Type: 
  Country: None (occurrence: None)
  Receive Date: 20051130
  Receipt Date: 20051108
  Transmission Date: 20060501
  Serious: Yes (Hospitalization)
  Sender: FDA-Public Use
  Company Number: ES-GLAXOSMITHKLINE-B0400104A

PATIENT
  Age: 72 Year
  Sex: Female

DRUGS (13)
  1. PAROXETINE HYDROCHLORIDE [Suspect]
     Indication: DEPRESSION
     Dosage: 20MG PER DAY
     Route: 065
  2. AMITRIPTYLINE HCL [Suspect]
     Route: 065
  3. LINEZOLID [Suspect]
     Dosage: 600MG SEE DOSAGE TEXT
     Route: 065
  4. ALPRAZOLAM [Concomitant]
     Dosage: .5MG PER DAY
     Route: 065
  5. VENLAFAXINE HCL [Concomitant]
     Dosage: 75MG PER DAY
     Route: 065
  6. BISOPROLOL [Concomitant]
     Route: 065
  7. CAPTOPRIL [Concomitant]
     Route: 065
  8. TRAZODONE [Concomitant]
     Dosage: 100MG PER DAY
     Route: 065
  9. AZTREONAM [Concomitant]
     Route: 065
  10. ALENDRONATE SODIUM [Concomitant]
     Route: 065
  11. CALCIUM GLUCONATE [Concomitant]
     Route: 065
  12. AMITRIPTYLINE HCL [Concomitant]
     Dosage: 10MG PER DAY
     Route: 065
  13. ENOXAPARIN SODIUM [Concomitant]
     Route: 065

REACTIONS (15)
  - AGITATION [None]
  - ASTHENIA [None]
  - CONDITION AGGRAVATED [None]
  - CONFUSIONAL STATE [None]
  - DISORIENTATION [None]
  - DRUG INTERACTION [None]
  - HYPERTENSION [None]
  - HYPERTONIA [None]
  - HYPONATRAEMIA [None]
  - MENTAL DISORDER [None]
  - PYREXIA [None]
  - SEROTONIN SYNDROME [None]
  - SOMNOLENCE [None]
  - STAPHYLOCOCCAL INFECTION [None]
  - TACHYCARDIA [None]
